FAERS Safety Report 7172107-X (Version None)
Quarter: 2010Q4

REPORT INFORMATION
  Report Type: 
  Country: None (occurrence: None)
  Receive Date: 20101217
  Receipt Date: 20100201
  Transmission Date: 20110411
  Serious: Yes (Hospitalization)
  Sender: FDA-Public Use
  Company Number: US-AMGEN-KDL388420

PATIENT

DRUGS (3)
  1. ENBREL [Suspect]
     Indication: RHEUMATOID ARTHRITIS
     Dosage: 50 MG, QWK
     Route: 058
     Dates: start: 20080115
  2. METHOTREXATE [Concomitant]
     Dosage: 17.5 MG, QWK
     Route: 058
  3. SULFASALAZINE [Concomitant]
     Dosage: 3000 MG, QD
     Route: 048

REACTIONS (7)
  - ANAEMIA [None]
  - INJECTION SITE ERYTHEMA [None]
  - INJECTION SITE INDURATION [None]
  - INJECTION SITE PRURITUS [None]
  - RHEUMATOID ARTHRITIS [None]
  - SEPSIS [None]
  - THROMBOSIS [None]
